FAERS Safety Report 22050541 (Version 4)
Quarter: 2023Q1

REPORT INFORMATION
  Report Type: Report from Study
  Country: JP (occurrence: JP)
  Receive Date: 20230301
  Receipt Date: 20230326
  Transmission Date: 20230417
  Serious: Yes (Hospitalization)
  Sender: FDA-Public Use
  Company Number: JP-JNJFOC-20230250570

PATIENT
  Age: 72 Year
  Sex: Female
  Weight: 38.6 kg

DRUGS (38)
  1. AMIVANTAMAB [Suspect]
     Active Substance: AMIVANTAMAB
     Indication: Non-small cell lung cancer metastatic
     Route: 042
     Dates: start: 20220323
  2. ZOLPIDEM [Concomitant]
     Active Substance: ZOLPIDEM TARTRATE
     Indication: Insomnia
     Route: 048
     Dates: start: 20210101
  3. LANSOPRAZOLE [Concomitant]
     Active Substance: LANSOPRAZOLE
     Indication: Prophylaxis against gastrointestinal ulcer
     Route: 048
     Dates: start: 20220314
  4. LOXOPROFEN SODIUM DIHYDRATE [Concomitant]
     Active Substance: LOXOPROFEN SODIUM DIHYDRATE
     Indication: Cancer pain
     Route: 048
     Dates: start: 20220314
  5. MINOCYCLINE HYDROCHLORIDE [Concomitant]
     Active Substance: MINOCYCLINE HYDROCHLORIDE
     Indication: Prophylaxis
     Route: 048
     Dates: start: 20220323
  6. HYDROMORPHONE HYDROCHLORIDE [Concomitant]
     Active Substance: HYDROMORPHONE HYDROCHLORIDE
     Indication: Cancer pain
     Route: 048
     Dates: start: 20220415
  7. MAGNESIUM OXIDE [Concomitant]
     Active Substance: MAGNESIUM OXIDE
     Indication: Constipation
     Route: 048
     Dates: start: 20220509
  8. HEPARINOID [Concomitant]
     Indication: Rash
     Dosage: DOSE: 1 (UNITS NOT PROVIDED)
     Route: 061
     Dates: start: 20220509
  9. HEPARINOID [Concomitant]
     Indication: Rash
     Dosage: DOSE: 1 UNIT
     Route: 061
     Dates: start: 20220521
  10. DERMOSOL G [Concomitant]
     Indication: Rash
     Dosage: DOSE: 1 (UNITS NOT PROVIDED)
     Route: 061
     Dates: start: 20220509
  11. SODIUM GUALENATE MONOHYDRATE [Concomitant]
     Active Substance: SODIUM GUALENATE MONOHYDRATE
     Indication: Cough
     Dosage: DOSE: 1 (UNITS NOT PROVIDED)
     Route: 061
     Dates: start: 20220509
  12. ESCHERICHIA COLI [Concomitant]
     Active Substance: ESCHERICHIA COLI
     Indication: Constipation
     Dosage: DOSE: 1 (UNITS NOT PROVIDED)
     Route: 061
     Dates: start: 20220509
  13. ENORAS [Concomitant]
     Indication: Decreased appetite
     Dosage: DOSE: 1 (UNITS NOT PROVIDED)
     Route: 061
     Dates: start: 20220516
  14. CARBOHYDRATES\FATTY ACIDS\MINERALS\PROTEIN\VITAMINS [Concomitant]
     Active Substance: CARBOHYDRATES\FATTY ACIDS\MINERALS\PROTEIN\VITAMINS
     Indication: Decreased appetite
     Dosage: DOSE: 1 (UNITS NOT PROVIDED)
     Route: 048
     Dates: start: 20220516
  15. ESZOPICLONE [Concomitant]
     Active Substance: ESZOPICLONE
     Indication: Insomnia
     Dosage: DOSE: 1 (UNITS NOT PROVIDED)
     Route: 061
     Dates: start: 20220516
  16. EDOXABAN TOSYLATE [Concomitant]
     Active Substance: EDOXABAN TOSYLATE
     Indication: Thrombosis prophylaxis
     Route: 048
     Dates: start: 20220520
  17. TERRA CORTRIL [HYDROCORTISONE;OXYTETRACYCLINE HYDROCHLORIDE] [Concomitant]
     Indication: Paronychia
     Dosage: DOSE: 1 (UNITS NOT PROVIDED)
     Route: 061
     Dates: start: 20220521
  18. CEFCAPENE PIVOXIL HYDROCHLORIDE [Concomitant]
     Active Substance: CEFCAPENE PIVOXIL HYDROCHLORIDE
     Indication: Paronychia
     Route: 048
     Dates: start: 20220521
  19. ANAMORELIN HYDROCHLORIDE [Concomitant]
     Active Substance: ANAMORELIN HYDROCHLORIDE
     Indication: Nutritional supplementation
     Route: 048
     Dates: start: 20220525
  20. ANAMORELIN HYDROCHLORIDE [Concomitant]
     Active Substance: ANAMORELIN HYDROCHLORIDE
     Indication: Decreased appetite
     Route: 048
     Dates: start: 20230218
  21. CROTAMITON [Concomitant]
     Active Substance: CROTAMITON
     Indication: Rash
     Dosage: DOSE: 1 (UNITS NOT PROVIDED)
     Route: 061
     Dates: start: 20220711
  22. VESICARE [Concomitant]
     Active Substance: SOLIFENACIN SUCCINATE
     Indication: Pollakiuria
     Route: 048
     Dates: start: 20220808
  23. VITAMEDIN [BENFOTIAMINE;CYANOCOBALAMIN;PYRIDOXINE HYDROCHLORIDE] [Concomitant]
     Indication: Decreased appetite
     Route: 042
     Dates: start: 20230217
  24. VITAMEDIN [BENFOTIAMINE;CYANOCOBALAMIN;PYRIDOXINE HYDROCHLORIDE] [Concomitant]
     Indication: Vomiting
  25. ACETAMINOPHEN [Concomitant]
     Active Substance: ACETAMINOPHEN
     Indication: Abdominal pain upper
     Route: 042
     Dates: start: 20230217
  26. VONOPRAZAN FUMARATE [Concomitant]
     Active Substance: VONOPRAZAN FUMARATE
     Indication: Abdominal pain upper
     Route: 048
     Dates: start: 20230217
  27. MOSAPRIDE CITRATE [Concomitant]
     Active Substance: MOSAPRIDE CITRATE
     Indication: Abdominal pain upper
     Route: 048
     Dates: start: 20230217
  28. PROCHLORPERAZINE MALEATE [Concomitant]
     Active Substance: PROCHLORPERAZINE MALEATE
     Indication: Nausea
     Route: 048
     Dates: start: 20230217
  29. PROCHLORPERAZINE MALEATE [Concomitant]
     Active Substance: PROCHLORPERAZINE MALEATE
     Indication: Vomiting
  30. SOLDEM 3A [Concomitant]
     Active Substance: CARBOHYDRATES\POTASSIUM CHLORIDE\SODIUM CHLORIDE\SODIUM LACTATE
     Indication: Decreased appetite
     Dosage: FREQUENCY: ONCE
     Route: 042
     Dates: start: 20230217, end: 20230217
  31. SOLDEM 3A [Concomitant]
     Active Substance: CARBOHYDRATES\POTASSIUM CHLORIDE\SODIUM CHLORIDE\SODIUM LACTATE
     Indication: Vomiting
  32. METOCLOPRAMIDE HYDROCHLORIDE [Concomitant]
     Active Substance: METOCLOPRAMIDE HYDROCHLORIDE
     Indication: Nausea
     Dosage: FREQUENCY: ONCE
     Route: 042
     Dates: start: 20230217, end: 20230217
  33. METOCLOPRAMIDE HYDROCHLORIDE [Concomitant]
     Active Substance: METOCLOPRAMIDE HYDROCHLORIDE
     Indication: Vomiting
  34. SOYBEAN OIL [Concomitant]
     Active Substance: SOYBEAN OIL
     Indication: Decreased appetite
     Route: 042
     Dates: start: 20230218
  35. ASCORBIC ACID [Concomitant]
     Active Substance: ASCORBIC ACID
     Indication: Decreased appetite
     Route: 042
     Dates: start: 20230218
  36. AMINO ACIDS\DEXTROSE\ELECTROLYTES NOS\VITAMINS [Concomitant]
     Active Substance: AMINO ACIDS\DEXTROSE\ELECTROLYTES NOS\VITAMINS
     Indication: Decreased appetite
     Route: 042
     Dates: start: 20230218
  37. BETAMETHASONE SODIUM PHOSPHATE [Concomitant]
     Active Substance: BETAMETHASONE SODIUM PHOSPHATE
     Indication: Prophylaxis
     Route: 042
     Dates: start: 20230221
  38. SODIUM GUALENATE [Concomitant]
     Active Substance: SODIUM GUALENATE
     Indication: Rash
     Dosage: 1 (UNIT UNSPECIFIED)
     Route: 061
     Dates: start: 20230123

REACTIONS (1)
  - Anaemia [Recovering/Resolving]

NARRATIVE: CASE EVENT DATE: 20230220
